FAERS Safety Report 16526786 (Version 1)
Quarter: 2019Q3

REPORT INFORMATION
  Report Type: Spontaneous
  Country: US (occurrence: US)
  Receive Date: 20190703
  Receipt Date: 20190703
  Transmission Date: 20191004
  Serious: Yes (Other)
  Sender: FDA-Public Use
  Company Number: US-ASTELLAS-2019US026799

PATIENT
  Age: 52 Year
  Sex: Male

DRUGS (4)
  1. ISAVUCONAZOLE [Suspect]
     Active Substance: ISAVUCONAZOLE
     Indication: MENINGITIS COCCIDIOIDES
  2. VORICONAZOLE. [Concomitant]
     Active Substance: VORICONAZOLE
     Indication: MENINGITIS COCCIDIOIDES
  3. VORICONAZOLE. [Concomitant]
     Active Substance: VORICONAZOLE
     Indication: COCCIDIOIDOMYCOSIS
     Dosage: UNK UNK, UNKNOWN FREQ.
     Route: 065
  4. ISAVUCONAZOLE [Suspect]
     Active Substance: ISAVUCONAZOLE
     Indication: COCCIDIOIDOMYCOSIS
     Dosage: UNK UNK, UNKNOWN FREQ.
     Route: 065

REACTIONS (2)
  - Squamous cell carcinoma of the tongue [Unknown]
  - Product use in unapproved indication [Unknown]
